FAERS Safety Report 7402740-9 (Version None)
Quarter: 2011Q2

REPORT INFORMATION
  Report Type: 
  Country: None (occurrence: None)
  Receive Date: 20110408
  Receipt Date: 20110324
  Transmission Date: 20111010
  Serious: No
  Sender: FDA-Public Use
  Company Number: US-ROCHE-766498

PATIENT
  Age: 2 Year
  Sex: Male
  Weight: 10.9 kg

DRUGS (1)
  1. TAMIFLU [Suspect]
     Dosage: DOSE: 15/ML
     Route: 048
     Dates: start: 20110316, end: 20110320

REACTIONS (2)
  - DIARRHOEA [None]
  - INCORRECT DOSE ADMINISTERED [None]
